FAERS Safety Report 4635270-8 (Version None)
Quarter: 2005Q2

REPORT INFORMATION
  Report Type: 
  Country: None (occurrence: None)
  Receive Date: 20050411
  Receipt Date: 20050401
  Transmission Date: 20051028
  Serious: Yes (Hospitalization)
  Sender: FDA-Public Use
  Company Number: 0500006EN0010P

PATIENT
  Age: 7 Year
  Sex: Male

DRUGS (2)
  1. ADAGEN [Suspect]
     Indication: COMBINED IMMUNODEFICIENCY
     Dosage: 375 IU 5 TIMES/WEEK
     Dates: start: 20030625, end: 20050320
  2. ADAGEN [Suspect]
     Indication: COMBINED IMMUNODEFICIENCY
     Dosage: 375 IU QD
     Dates: start: 20050320

REACTIONS (1)
  - MENINGITIS CRYPTOCOCCAL [None]
